FAERS Safety Report 5683936-3 (Version None)
Quarter: 2008Q1

REPORT INFORMATION
  Report Type: 
  Country: None (occurrence: None)
  Receive Date: 20080328
  Receipt Date: 20080319
  Transmission Date: 20080703
  Serious: Yes (Hospitalization)
  Sender: FDA-Public Use
  Company Number: PHHY2008JP00736

PATIENT
  Age: 60 Year
  Sex: Female
  Weight: 50 kg

DRUGS (11)
  1. ZOMETA [Suspect]
     Indication: METASTASES TO BONE
     Dosage: 4 MG/ DAY
     Route: 041
     Dates: start: 20071204, end: 20071204
  2. LAC B [Concomitant]
     Indication: SCHIZOPHRENIA
     Dosage: 3 DF, UNK
     Route: 048
  3. MARZULENE S [Concomitant]
     Indication: SCHIZOPHRENIA
     Dosage: 0.67 G /DAY
     Route: 048
  4. URSO 250 [Concomitant]
     Indication: SCHIZOPHRENIA
     Dosage: 1000 DF / DAY
     Route: 048
  5. AM [Concomitant]
     Indication: SCHIZOPHRENIA
     Dosage: 1.3 G/ DAY
     Route: 048
  6. DOGMATYL [Concomitant]
     Indication: SCHIZOPHRENIA
     Dosage: 4000 DF / DAY
     Route: 048
  7. DEPAS [Concomitant]
     Dosage: 1 DE / DAY
     Route: 048
  8. PARKINES [Concomitant]
     Indication: SCHIZOPHRENIA
     Dosage: 4 DF / DAY
     Route: 048
  9. LEVOTOMIN [Concomitant]
     Indication: SCHIZOPHRENIA
     Dosage: 25 DF / DAY
     Route: 048
  10. LENDORMIN [Concomitant]
     Indication: SCHIZOPHRENIA
     Dosage: 25 DF / DAY
     Route: 048
  11. ROHYPNOL [Concomitant]
     Indication: SCHIZOPHRENIA
     Dosage: 2 DF / DAY
     Route: 048

REACTIONS (3)
  - DECREASED APPETITE [None]
  - PYREXIA [None]
  - URINARY INCONTINENCE [None]
